FAERS Safety Report 11177901 (Version 1)
Quarter: 2015Q2

REPORT INFORMATION
  Report Type: Spontaneous
  Country: US (occurrence: None)
  Receive Date: 20150609
  Receipt Date: 20150609
  Transmission Date: 20150821
  Serious: Yes (Disabling)
  Sender: FDA-Public Use
  Company Number: None

PATIENT
  Age: 51 Year
  Sex: Female
  Weight: 81.65 kg

DRUGS (1)
  1. LEVAQUIN [Suspect]
     Active Substance: LEVOFLOXACIN
     Indication: SINUSITIS
     Route: 048
     Dates: start: 20150530, end: 20150604

REACTIONS (8)
  - Swelling [None]
  - Contusion [None]
  - Tendon pain [None]
  - Gait disturbance [None]
  - Pain [None]
  - Tendonitis [None]
  - Musculoskeletal stiffness [None]
  - Mobility decreased [None]

NARRATIVE: CASE EVENT DATE: 20150604
